FAERS Safety Report 12327054 (Version 1)
Quarter: 2016Q2

REPORT INFORMATION
  Report Type: Spontaneous
  Country: US (occurrence: US)
  Receive Date: 20160503
  Receipt Date: 20160503
  Transmission Date: 20160815
  Serious: No
  Sender: FDA-Public Use
  Company Number: US-VIFOR (INTERNATIONAL) INC.-VIT-2016-01598

PATIENT
  Sex: Female
  Weight: 94.4 kg

DRUGS (1)
  1. MIRCERA [Suspect]
     Active Substance: METHOXY POLYETHYLENE GLYCOL-EPOETIN BETA
     Indication: PRODUCT USED FOR UNKNOWN INDICATION
     Route: 040

REACTIONS (5)
  - Pharyngeal oedema [Unknown]
  - Dyspnoea [Unknown]
  - Chest discomfort [Unknown]
  - Chest pain [Unknown]
  - Anxiety [Unknown]
